FAERS Safety Report 8141424-9 (Version None)
Quarter: 2012Q1

REPORT INFORMATION
  Report Type: 
  Country: None (occurrence: None)
  Receive Date: 20120216
  Receipt Date: 20120213
  Transmission Date: 20120608
  Serious: Yes (Hospitalization)
  Sender: FDA-Public Use
  Company Number: PHEH2012US003684

PATIENT
  Sex: Male

DRUGS (5)
  1. BYSTOLIC [Concomitant]
     Dosage: UNK
  2. KLOR-CON [Concomitant]
     Dosage: UNK
  3. EXFORGE HCT [Suspect]
     Dosage: 320/10/25 MG, QD
  4. AGGRENOX [Concomitant]
     Dosage: UNK
  5. SIMVASTATIN [Concomitant]
     Dosage: UNK

REACTIONS (1)
  - CARDIAC ARREST [None]
